FAERS Safety Report 5508479-9 (Version None)
Quarter: 2007Q4

REPORT INFORMATION
  Report Type: 
  Country: None (occurrence: None)
  Receive Date: 20071105
  Receipt Date: 20071022
  Transmission Date: 20080405
  Serious: Yes (Death)
  Sender: FDA-Public Use
  Company Number: KADN20070091

PATIENT
  Age: 43 Year
  Sex: Female
  Weight: 133.1307 kg

DRUGS (18)
  1. KADIAN [Suspect]
     Indication: BACK PAIN
     Dosage: 1 CAP DAILY, PER ORAL
     Route: 048
     Dates: start: 20070829, end: 20070801
  2. PERCOCET [Suspect]
     Dates: end: 20070901
  3. ZOLOFT [Suspect]
     Dates: end: 20070901
  4. VALIUM [Suspect]
     Dates: end: 20070901
  5. AMITRIPTYLINE HCL [Suspect]
     Dates: end: 20070901
  6. TRAZODONE HCL [Suspect]
     Dates: end: 20070901
  7. PROPOXYPHENE HYDROCHLORIDE [Suspect]
     Dates: end: 20070901
  8. CYCLOBENZAPRINE HCL [Suspect]
     Dates: end: 20070901
  9. ZOLPIDEM TARTRATE [Suspect]
     Dates: end: 20070901
  10. THEOPHYLLINE [Suspect]
     Dates: end: 20070901
  11. LYRICA [Concomitant]
  12. IMITREX [Concomitant]
  13. BENICAR [Concomitant]
  14. VYTORIN [Concomitant]
  15. PREVACID [Concomitant]
  16. LEVSIN [Concomitant]
  17. NAPROSYN [Concomitant]
  18. ATROPINE [Concomitant]

REACTIONS (20)
  - AORTIC DISORDER [None]
  - AORTIC VALVE ATRESIA [None]
  - AORTIC VALVE CALCIFICATION [None]
  - AORTIC VALVE STENOSIS [None]
  - ASPIRATION [None]
  - ASTHMA [None]
  - CARDIOMEGALY [None]
  - CONDITION AGGRAVATED [None]
  - CONTUSION [None]
  - DEHYDRATION [None]
  - DRUG SCREEN POSITIVE [None]
  - HEPATIC STEATOSIS [None]
  - HEPATITIS [None]
  - LEFT VENTRICULAR HYPERTROPHY [None]
  - PULMONARY CONGESTION [None]
  - PULMONARY OEDEMA [None]
  - SOMNOLENCE [None]
  - SPLEEN CONGESTION [None]
  - VARICOSE VEIN [None]
  - VOMITING [None]
